FAERS Safety Report 4451989-6 (Version None)
Quarter: 2004Q3

REPORT INFORMATION
  Report Type: 
  Country: None (occurrence: None)
  Receive Date: 20040913
  Receipt Date: 20040701
  Transmission Date: 20050211
  Serious: No
  Sender: FDA-Public Use
  Company Number: 2004-BP-05332BP(0)

PATIENT
  Age: 85 Year
  Sex: Female

DRUGS (11)
  1. SPIRIVA [Suspect]
     Indication: CHRONIC OBSTRUCTIVE AIRWAYS DISEASE
     Dosage: 18 MCG (18 MCG), IH
     Route: 055
     Dates: start: 20040601, end: 20040629
  2. ADVAIR (SERETIDE MITE) [Concomitant]
  3. ATROVENT [Concomitant]
  4. COMBIVENT [Concomitant]
  5. SINGULAIR [Concomitant]
  6. PULMICORT [Concomitant]
  7. NASONEX [Concomitant]
  8. DIOVAN [Concomitant]
  9. BIDOPROLOL (BISOPROLOL) [Concomitant]
  10. ALDACTONE [Concomitant]
  11. ACTONEL [Concomitant]

REACTIONS (1)
  - OEDEMA PERIPHERAL [None]
